FAERS Safety Report 5140538-5 (Version None)
Quarter: 2006Q4

REPORT INFORMATION
  Report Type: 
  Country: None (occurrence: None)
  Receive Date: 20061025
  Receipt Date: 20061011
  Transmission Date: 20070319
  Serious: Yes (Other)
  Sender: FDA-Public Use
  Company Number: 008839

PATIENT
  Age: 18 Year
  Sex: Male
  Weight: 70.3 kg

DRUGS (5)
  1. CLARAVIS [Suspect]
     Indication: ACNE
     Dosage: 50 MG, QD, ORAL; ORAL; 60 MG, QD, ORAL; 50 MG, QD, ORAL; 60 MG, QD, ORAL
     Route: 048
     Dates: start: 20060105, end: 20060307
  2. CLARAVIS [Suspect]
     Indication: ACNE
     Dosage: 50 MG, QD, ORAL; ORAL; 60 MG, QD, ORAL; 50 MG, QD, ORAL; 60 MG, QD, ORAL
     Route: 048
     Dates: start: 20060504, end: 20060601
  3. CLARAVIS [Suspect]
     Indication: ACNE
     Dosage: 50 MG, QD, ORAL; ORAL; 60 MG, QD, ORAL; 50 MG, QD, ORAL; 60 MG, QD, ORAL
     Route: 048
     Dates: start: 20060601, end: 20060710
  4. CLARAVIS [Suspect]
     Indication: ACNE
     Dosage: 50 MG, QD, ORAL; ORAL; 60 MG, QD, ORAL; 50 MG, QD, ORAL; 60 MG, QD, ORAL
     Route: 048
     Dates: start: 20060710, end: 20060718
  5. CLARAVIS [Suspect]
     Indication: ACNE
     Dosage: 50 MG, QD, ORAL; ORAL; 60 MG, QD, ORAL; 50 MG, QD, ORAL; 60 MG, QD, ORAL
     Route: 048
     Dates: start: 20061011

REACTIONS (4)
  - ALANINE AMINOTRANSFERASE INCREASED [None]
  - ASPARTATE AMINOTRANSFERASE INCREASED [None]
  - BLOOD LACTATE DEHYDROGENASE INCREASED [None]
  - HEAT STROKE [None]
